FAERS Safety Report 11150603 (Version 3)
Quarter: 2015Q3

REPORT INFORMATION
  Report Type: Spontaneous
  Country: US (occurrence: US)
  Receive Date: 20150601
  Receipt Date: 20150825
  Transmission Date: 20151125
  Serious: Yes (Other)
  Sender: FDA-Public Use
  Company Number: US-009507513-1505USA011147

PATIENT
  Age: 39 Year
  Sex: Female

DRUGS (1)
  1. PREGNYL [Suspect]
     Active Substance: CHORIOGONADOTROPIN ALFA
     Indication: IN VITRO FERTILISATION
     Dosage: UNK

REACTIONS (3)
  - Ovarian hyperstimulation syndrome [Unknown]
  - Acute kidney injury [Recovered/Resolved]
  - Nephropathy [Recovered/Resolved]
